FAERS Safety Report 21634773 (Version 1)
Quarter: 2022Q4

REPORT INFORMATION
  Report Type: Spontaneous
  Country: ES (occurrence: ES)
  Receive Date: 20221123
  Receipt Date: 20221123
  Transmission Date: 20230113
  Serious: Yes (Death, Hospitalization, Other)
  Sender: FDA-Public Use
  Company Number: None

PATIENT
  Age: 84 Year
  Sex: Female
  Weight: 49.1 kg

DRUGS (4)
  1. EDOXABAN TOSYLATE [Suspect]
     Active Substance: EDOXABAN TOSYLATE
     Indication: Embolism venous
     Dosage: 30 MG, QD (1 TABLET PER DAY)
     Route: 048
     Dates: start: 20221103, end: 20221106
  2. INNOHEP [Suspect]
     Active Substance: TINZAPARIN SODIUM
     Indication: Embolism venous
     Dosage: 8000 IU, QD
     Route: 058
     Dates: start: 20220914, end: 20221102
  3. FLUAD TETRA [Suspect]
     Active Substance: INFLUENZA VIRUS VACCINE
     Indication: Immunisation
     Dosage: UNK, QD
     Route: 030
     Dates: start: 20221103, end: 20221103
  4. COMIRNATY [Suspect]
     Active Substance: TOZINAMERAN
     Indication: COVID-19 immunisation
     Dosage: UNK UNK, QD
     Route: 030
     Dates: start: 20221103, end: 20221103

REACTIONS (6)
  - Embolic stroke [Fatal]
  - Pulmonary embolism [Fatal]
  - Disseminated intravascular coagulation [Fatal]
  - Heparin-induced thrombocytopenia [Fatal]
  - Stress cardiomyopathy [Fatal]
  - Peripheral artery occlusion [Fatal]

NARRATIVE: CASE EVENT DATE: 20221104
